FAERS Safety Report 5843421-2 (Version None)
Quarter: 2008Q3

REPORT INFORMATION
  Report Type: 
  Country: None (occurrence: None)
  Receive Date: 20080813
  Receipt Date: 20080807
  Transmission Date: 20090109
  Serious: Yes (Other)
  Sender: FDA-Public Use
  Company Number: B0532518A

PATIENT
  Age: 20 Year
  Sex: Female

DRUGS (1)
  1. AUGMENTIN [Suspect]
     Indication: PROPHYLAXIS
     Route: 048
     Dates: start: 20080701, end: 20080801

REACTIONS (5)
  - ERYTHEMA MULTIFORME [None]
  - HYPERSENSITIVITY [None]
  - OEDEMA [None]
  - PRURITUS [None]
  - RASH GENERALISED [None]
